FAERS Safety Report 7805593-X (Version None)
Quarter: 2011Q4

REPORT INFORMATION
  Report Type: 
  Country: None (occurrence: None)
  Receive Date: 20111010
  Receipt Date: 20110930
  Transmission Date: 20120403
  Serious: Yes (Other)
  Sender: FDA-Public Use
  Company Number: JP-ASTRAZENECA-2010SE30162

PATIENT
  Age: 43 Year
  Sex: Female
  Weight: 100 kg

DRUGS (13)
  1. HIRUDOID [Concomitant]
     Indication: RASH
     Route: 062
     Dates: start: 20100603
  2. OLOPATADINE HCL [Concomitant]
     Indication: RHINITIS ALLERGIC
     Route: 048
  3. ALENDRONATE SODIUM [Concomitant]
     Indication: OSTEOPOROSIS
     Route: 048
  4. SYMBICORT [Suspect]
     Indication: ASTHMA
     Dosage: 2 DOSAGE FORM TWO TIMES A DAY
     Route: 055
     Dates: start: 20100426, end: 20100523
  5. SYMBICORT [Suspect]
     Dosage: 1 DOSAGE FORM TWO TIMES A DAY
     Route: 055
     Dates: start: 20100524, end: 20100614
  6. MEPTIN AIR [Concomitant]
     Indication: ASTHMA
     Route: 055
     Dates: start: 20070205
  7. ALVESCO [Concomitant]
     Indication: ASTHMA
     Route: 055
     Dates: start: 20100104, end: 20100614
  8. LOXONIN [Concomitant]
     Indication: PERIARTHRITIS
     Route: 048
     Dates: start: 20100422
  9. ONON [Concomitant]
     Indication: ASTHMA
     Route: 048
  10. FAMOTIDINE [Concomitant]
     Indication: PROPHYLAXIS AGAINST GASTROINTESTINAL ULCER
     Route: 048
  11. THEO-DUR [Concomitant]
     Indication: ASTHMA
     Route: 048
  12. LOCOID [Concomitant]
     Indication: RASH
     Dosage: TWO TIMES A DAY
     Route: 062
     Dates: start: 20100603
  13. MUCODYNE [Concomitant]
     Indication: ASTHMA
     Route: 048

REACTIONS (1)
  - OEDEMA PERIPHERAL [None]
